FAERS Safety Report 13088821 (Version 2)
Quarter: 2017Q1

REPORT INFORMATION
  Report Type: Spontaneous
  Country: US (occurrence: US)
  Receive Date: 20170105
  Receipt Date: 20170125
  Transmission Date: 20170428
  Serious: Yes (Other)
  Sender: FDA-Public Use
  Company Number: US-ENDO PHARMACEUTICALS INC.-2017-000019

PATIENT
  Age: 62 Year
  Sex: Male
  Weight: 77.1 kg

DRUGS (4)
  1. XIAFLEX [Suspect]
     Active Substance: COLLAGENASE CLOSTRIDIUM HISTOLYTICUM
     Dosage: FIRST INJECTION OF FIRST CYCLE
     Route: 026
     Dates: start: 201611
  2. XIAFLEX [Suspect]
     Active Substance: COLLAGENASE CLOSTRIDIUM HISTOLYTICUM
     Dosage: 0.25 ML, SINGLE
     Route: 026
     Dates: start: 20161212
  3. XIAFLEX [Suspect]
     Active Substance: COLLAGENASE CLOSTRIDIUM HISTOLYTICUM
     Indication: PEYRONIE^S DISEASE
     Dosage: SECOND INJECTION OF FIRST CYCLE
     Route: 026
     Dates: start: 20161117
  4. XIAFLEX [Suspect]
     Active Substance: COLLAGENASE CLOSTRIDIUM HISTOLYTICUM
     Dosage: 0.25 ML, SINGLE
     Route: 026
     Dates: start: 20161215

REACTIONS (7)
  - Head injury [Recovered/Resolved]
  - Skin abrasion [Recovered/Resolved]
  - Heart rate decreased [Unknown]
  - Syncope [Recovered/Resolved]
  - Blood glucose increased [Unknown]
  - Hypotension [Recovered/Resolved]
  - Hyperhidrosis [Recovered/Resolved]

NARRATIVE: CASE EVENT DATE: 20161117
